FAERS Safety Report 8833708 (Version 1)
Quarter: 2012Q4

REPORT INFORMATION
  Report Type: 
  Country: US (occurrence: US)
  Receive Date: 20121010
  Receipt Date: 20121010
  Transmission Date: 20130627
  Serious: No
  Sender: FDA-Public Use
  Company Number: US-VERTEX PHARMACEUTICAL INC.-2012-021869

PATIENT
  Sex: Female

DRUGS (12)
  1. VX-950 [Suspect]
     Indication: HEPATITIS C
     Dosage: 750 mg, tid
     Route: 048
     Dates: start: 2012
  2. PEGINTRON                          /01543001/ [Concomitant]
     Indication: HEPATITIS C
     Dosage: 120 ?g, UNK
     Route: 058
     Dates: start: 2012
  3. RIBAPAK [Concomitant]
     Indication: HEPATITIS C
     Dosage: 1000 mg, qd
     Dates: start: 2012
  4. BONIVA [Concomitant]
     Dosage: 150 UNK, UNK
  5. LITHIUM CARBONATE [Concomitant]
  6. PREDNISONE [Concomitant]
  7. POTASSIUM                          /00031402/ [Concomitant]
  8. TRAMADOL HCL [Concomitant]
     Dosage: UNK, qid
  9. VENLAFAXINE HYDROCHLORIDE [Concomitant]
  10. PROMETHAZINE [Concomitant]
  11. OMEPRAZOLE [Concomitant]
  12. BYSTOLIC [Suspect]

REACTIONS (4)
  - Arthritis [Unknown]
  - Coordination abnormal [Unknown]
  - Memory impairment [Unknown]
  - Gait disturbance [Unknown]
